FAERS Safety Report 9445957 (Version 1)
Quarter: 2013Q3

REPORT INFORMATION
  Report Type: Other
  Country: US (occurrence: US)
  Receive Date: 20130807
  Receipt Date: 20130807
  Transmission Date: 20140515
  Serious: Yes (Hospitalization)
  Sender: FDA-Public Use
  Company Number: US-BRISTOL-MYERS SQUIBB COMPANY-19161413

PATIENT
  Age: 37 Year
  Sex: Female

DRUGS (2)
  1. MITOMYCIN-C [Suspect]
     Indication: APPENDIX CANCER
     Route: 033
     Dates: start: 2002
  2. 5-FLUOROURACIL [Suspect]
     Indication: APPENDIX CANCER
     Route: 033
     Dates: start: 2002

REACTIONS (1)
  - Gastric perforation [Unknown]
